FAERS Safety Report 23742025 (Version 1)
Quarter: 2024Q2

REPORT INFORMATION
  Report Type: Spontaneous
  Country: US (occurrence: US)
  Receive Date: 20240415
  Receipt Date: 20240415
  Transmission Date: 20240716
  Serious: Yes (Hospitalization)
  Sender: FDA-Public Use
  Company Number: US-STRIDES ARCOLAB LIMITED-2024SP004160

PATIENT
  Age: 63 Year
  Sex: Female

DRUGS (2)
  1. VERAPAMIL [Suspect]
     Active Substance: VERAPAMIL HYDROCHLORIDE
     Indication: Hypertension
     Dosage: 240 MILLIGRAM, OD (EXTENDED RELEASE) (TABLET)
     Route: 065
  2. VERAPAMIL [Suspect]
     Active Substance: VERAPAMIL HYDROCHLORIDE
     Indication: Atrial fibrillation

REACTIONS (4)
  - Distributive shock [Recovered/Resolved]
  - Cardiac dysfunction [Recovered/Resolved]
  - Toxicity to various agents [Recovered/Resolved]
  - Off label use [Unknown]
